FAERS Safety Report 7937748-8 (Version None)
Quarter: 2011Q4

REPORT INFORMATION
  Report Type: 
  Country: None (occurrence: None)
  Receive Date: 20111123
  Receipt Date: 20111114
  Transmission Date: 20120403
  Serious: Yes (Hospitalization, Other)
  Sender: FDA-Public Use
  Company Number: JP-AMGEN-JPNCT2011002647

PATIENT
  Age: 76 Year
  Sex: Male
  Weight: 45 kg

DRUGS (13)
  1. PANITUMUMAB [Suspect]
     Dosage: 200 UNK, Q2WK
     Route: 041
     Dates: start: 20110111, end: 20110111
  2. FLUOROURACIL [Suspect]
     Indication: COLORECTAL CANCER
     Route: 040
     Dates: start: 20101129, end: 20101129
  3. LEVOLEUCOVORIN CALCIUM [Concomitant]
     Indication: COLORECTAL CANCER
     Route: 041
     Dates: start: 20101129, end: 20101129
  4. FLUOROURACIL [Suspect]
     Route: 040
     Dates: start: 20110111, end: 20110111
  5. IRINOTECAN HYDROCHLORIDE [Suspect]
     Route: 041
     Dates: start: 20110111, end: 20110111
  6. IRINOTECAN HYDROCHLORIDE [Suspect]
     Indication: COLORECTAL CANCER
     Route: 041
     Dates: start: 20101129, end: 20101129
  7. FLUOROURACIL [Suspect]
     Route: 041
     Dates: start: 20110111, end: 20110111
  8. DEXAMETHASONE SODIUM PHOSPHATE [Concomitant]
     Indication: PROPHYLAXIS
     Route: 042
     Dates: start: 20101129, end: 20101129
  9. LEVOLEUCOVORIN CALCIUM [Concomitant]
     Route: 041
     Dates: start: 20110111, end: 20110111
  10. KYTRIL [Concomitant]
     Indication: PROPHYLAXIS
     Route: 042
     Dates: start: 20101129, end: 20101129
  11. PANITUMUMAB [Suspect]
     Indication: COLORECTAL CANCER
     Dosage: 270 MG, Q2WK
     Route: 041
     Dates: start: 20101129, end: 20101129
  12. FLUOROURACIL [Suspect]
     Route: 041
     Dates: start: 20101129, end: 20101201
  13. POLARAMINE [Concomitant]
     Indication: PROPHYLAXIS
     Route: 042
     Dates: start: 20101129, end: 20101129

REACTIONS (6)
  - STOMATITIS [None]
  - DEHYDRATION [None]
  - FEBRILE NEUTROPENIA [None]
  - PLATELET COUNT DECREASED [None]
  - DIARRHOEA [None]
  - VOMITING [None]
